FAERS Safety Report 4458307-8 (Version None)
Quarter: 2004Q3

REPORT INFORMATION
  Report Type: 
  Country: None (occurrence: None)
  Receive Date: 20040917
  Receipt Date: 20040311
  Transmission Date: 20050211
  Serious: Yes (Other)
  Sender: FDA-Public Use
  Company Number: US-JNJFOC-20040102285

PATIENT
  Age: 56 Year
  Sex: Female
  Weight: 90.7194 kg

DRUGS (10)
  1. TOPAMAX [Suspect]
     Indication: ANXIETY
     Dosage: 25 MG, 2 IN 1 DAY ;  25 MG, 1 IN 1 DAY : ORAL
     Route: 048
     Dates: start: 20031030, end: 20031201
  2. TOPAMAX [Suspect]
     Indication: DEPRESSION
     Dosage: 25 MG, 2 IN 1 DAY ;  25 MG, 1 IN 1 DAY : ORAL
     Route: 048
     Dates: start: 20031030, end: 20031201
  3. TOPAMAX [Suspect]
     Indication: OBESITY
     Dosage: 25 MG, 2 IN 1 DAY ;  25 MG, 1 IN 1 DAY : ORAL
     Route: 048
     Dates: start: 20031030, end: 20031201
  4. TOPAMAX [Suspect]
     Indication: ANXIETY
     Dosage: 25 MG, 2 IN 1 DAY ;  25 MG, 1 IN 1 DAY : ORAL
     Route: 048
     Dates: start: 20031201, end: 20040109
  5. TOPAMAX [Suspect]
     Indication: DEPRESSION
     Dosage: 25 MG, 2 IN 1 DAY ;  25 MG, 1 IN 1 DAY : ORAL
     Route: 048
     Dates: start: 20031201, end: 20040109
  6. TOPAMAX [Suspect]
     Indication: OBESITY
     Dosage: 25 MG, 2 IN 1 DAY ;  25 MG, 1 IN 1 DAY : ORAL
     Route: 048
     Dates: start: 20031201, end: 20040109
  7. ATENELOL () ATENOLOL [Concomitant]
  8. SYNTHROID [Concomitant]
  9. PROTONIX [Concomitant]
  10. EYE DROPS (ALL OTHER THERAPEUTIC PRODUCTS) [Concomitant]

REACTIONS (4)
  - FATIGUE [None]
  - PARAESTHESIA [None]
  - PCO2 DECREASED [None]
  - WEIGHT DECREASED [None]
